FAERS Safety Report 4641165-6 (Version None)
Quarter: 2005Q2

REPORT INFORMATION
  Report Type: 
  Country: None (occurrence: None)
  Receive Date: 20050421
  Receipt Date: 20050411
  Transmission Date: 20051028
  Serious: Yes (Other)
  Sender: FDA-Public Use
  Company Number: US-BRISTOL-MYERS SQUIBB COMPANY-12938312

PATIENT
  Age: 32 Year
  Sex: Female

DRUGS (1)
  1. SERZONE [Suspect]
     Dates: start: 20001219, end: 20010213

REACTIONS (4)
  - FEELING ABNORMAL [None]
  - GALLBLADDER DISORDER [None]
  - HEPATIC NEOPLASM [None]
  - MIGRAINE [None]
